FAERS Safety Report 8563832-4 (Version None)
Quarter: 2012Q3

REPORT INFORMATION
  Report Type: 
  Country: None (occurrence: None)
  Receive Date: 20120727
  Receipt Date: 20120727
  Transmission Date: 20120928
  Serious: Yes (Hospitalization)
  Sender: FDA-Public Use
  Company Number: None

PATIENT
  Age: 92 Year
  Sex: Male
  Weight: 65 kg

DRUGS (10)
  1. ASPIRIN [Concomitant]
  2. MEMANTINE HCL [Concomitant]
  3. M.V.I. [Concomitant]
  4. XANAX [Concomitant]
  5. GUAIFENESIN [Concomitant]
  6. CIPROFLOXACIN [Suspect]
     Indication: URINARY TRACT INFECTION
     Dosage: 20MG BID PO  ONE DOSE RECENTLY
     Route: 048
  7. CELEXA [Concomitant]
  8. TYLENOL [Concomitant]
  9. OMEPRAZOLE [Concomitant]
  10. ARTHRITIS [Concomitant]

REACTIONS (3)
  - MENTAL STATUS CHANGES [None]
  - NO THERAPEUTIC RESPONSE [None]
  - DELIRIUM [None]
